FAERS Safety Report 9623673 (Version 2)
Quarter: 2013Q4

REPORT INFORMATION
  Report Type: Report from Study
  Country: US (occurrence: US)
  Receive Date: 20131015
  Receipt Date: 20131210
  Transmission Date: 20140711
  Serious: Yes (Other)
  Sender: FDA-Public Use
  Company Number: PHEH2013US021334

PATIENT
  Sex: Male

DRUGS (2)
  1. TRILEPTAL [Suspect]
     Indication: CONVULSION
     Dosage: 600 MG, UNK
     Route: 048
  2. DEPAKOTE [Concomitant]

REACTIONS (2)
  - Accident [Unknown]
  - Convulsion [Unknown]
